FAERS Safety Report 25130820 (Version 1)
Quarter: 2025Q1

REPORT INFORMATION
  Report Type: Spontaneous
  Country: US (occurrence: US)
  Receive Date: 20250327
  Receipt Date: 20250327
  Transmission Date: 20250409
  Serious: Yes (Other)
  Sender: MERCK SHARP & DOHME LLC
  Company Number: US-009507513-2269072

PATIENT
  Age: 43 Year
  Sex: Female

DRUGS (6)
  1. SOTATERCEPT [Suspect]
     Active Substance: SOTATERCEPT
     Route: 065
  2. SOTATERCEPT [Suspect]
     Active Substance: SOTATERCEPT
  3. SOTATERCEPT [Suspect]
     Active Substance: SOTATERCEPT
  4. SOTATERCEPT [Suspect]
     Active Substance: SOTATERCEPT
  5. REMODULIN [Suspect]
     Active Substance: TREPROSTINIL
     Dosage: 116.4 ML, QD
     Route: 058
  6. AMBRISENTAN [Suspect]
     Active Substance: AMBRISENTAN
     Dosage: 10 MG, QD
     Route: 065

REACTIONS (7)
  - Bendopnoea [Unknown]
  - Pain in jaw [Unknown]
  - Dyspnoea exertional [Unknown]
  - Platelet count decreased [Unknown]
  - Nausea [Unknown]
  - Infusion site pain [Unknown]
  - Pain in extremity [Unknown]
